FAERS Safety Report 10022129 (Version 2)
Quarter: 2014Q2

REPORT INFORMATION
  Report Type: Spontaneous
  Country: US (occurrence: US)
  Receive Date: 20140319
  Receipt Date: 20140415
  Transmission Date: 20141212
  Serious: Yes (Death)
  Sender: FDA-Public Use
  Company Number: US-GLAXOSMITHKLINE-A1065503A

PATIENT
  Age: 54 Year
  Sex: Male
  Weight: 103 kg

DRUGS (5)
  1. SPIRONOLACTONE [Concomitant]
  2. CEFTRIAXONE [Concomitant]
  3. FUROSEMIDE [Concomitant]
  4. TPN [Concomitant]
  5. ARIXTRA [Suspect]
     Indication: PRODUCT USED FOR UNKNOWN INDICATION
     Dosage: 10MG UNKNOWN
     Route: 065

REACTIONS (3)
  - Death [Fatal]
  - Hepatic encephalopathy [Not Recovered/Not Resolved]
  - Confusional state [Not Recovered/Not Resolved]
